FAERS Safety Report 9712354 (Version 2)
Quarter: 2013Q4

REPORT INFORMATION
  Report Type: Spontaneous
  Country: US (occurrence: US)
  Receive Date: 20131126
  Receipt Date: 20131126
  Transmission Date: 20140711
  Serious: No
  Sender: FDA-Public Use
  Company Number: US-BRISTOL-MYERS SQUIBB COMPANY-19167261

PATIENT
  Age: 75 Year
  Sex: Female
  Weight: 90.7 kg

DRUGS (3)
  1. BYDUREON 2MG SUSPENSION [Suspect]
     Indication: TYPE 2 DIABETES MELLITUS
     Route: 058
     Dates: start: 20130713
  2. SIMVASTATIN [Concomitant]
  3. PREVACID [Concomitant]
     Indication: BARRETT^S OESOPHAGUS
     Dosage: HIGH DOSE
     Route: 048
     Dates: start: 201210

REACTIONS (5)
  - Injection site mass [Unknown]
  - Injection site induration [Unknown]
  - Injection site haemorrhage [Unknown]
  - Dizziness [Recovered/Resolved]
  - Injection site nodule [Unknown]
